FAERS Safety Report 25665252 (Version 2)
Quarter: 2025Q3

REPORT INFORMATION
  Report Type: Spontaneous
  Country: US (occurrence: US)
  Receive Date: 20250811
  Receipt Date: 20250813
  Transmission Date: 20251021
  Serious: Yes (Other)
  Sender: PFIZER
  Company Number: US-PFIZER INC-202500159935

PATIENT
  Age: 52 Year
  Sex: Female
  Weight: 50.35 kg

DRUGS (6)
  1. PAXLOVID [Suspect]
     Active Substance: NIRMATRELVIR\RITONAVIR
     Indication: COVID-19 treatment
     Dosage: [NIRMATRELVIR 300 MG]/[RITONAVIR 100 MG]; 2X/DAY
     Route: 048
     Dates: start: 20250728, end: 20250802
  2. SKYRIZI [Concomitant]
     Active Substance: RISANKIZUMAB-RZAA
     Indication: Psoriatic arthropathy
     Dosage: 240MG INJECTABLE EVERY 3 MONTH
  3. ADEMETIONINE [Concomitant]
     Active Substance: ADEMETIONINE
     Indication: Inflammation
     Dosage: 300 MG, 1X/DAY
     Route: 048
  4. DIETARY SUPPLEMENT [Concomitant]
     Active Substance: DIETARY SUPPLEMENT
     Indication: Vitamin supplementation
     Dosage: 6 DF, 1X/DAY
  5. COLLAGEN [Concomitant]
     Active Substance: COLLAGEN
     Indication: Nail disorder
     Dosage: 6 TABLETS ONCE A DAY BY MOUTH
     Route: 048
  6. COLLAGEN [Concomitant]
     Active Substance: COLLAGEN
     Indication: Hair disorder

REACTIONS (6)
  - COVID-19 [Recovering/Resolving]
  - Disease recurrence [Recovering/Resolving]
  - Abdominal pain upper [Recovering/Resolving]
  - Chest pain [Recovering/Resolving]
  - Bone pain [Recovering/Resolving]
  - Dyspnoea [Recovering/Resolving]

NARRATIVE: CASE EVENT DATE: 20250804
